FAERS Safety Report 5794870-2 (Version None)
Quarter: 2008Q2

REPORT INFORMATION
  Report Type: 
  Country: None (occurrence: None)
  Receive Date: 20080627
  Receipt Date: 20080627
  Transmission Date: 20081010
  Serious: No
  Sender: FDA-Public Use
  Company Number: None

PATIENT
  Age: 57 Year
  Sex: Female
  Weight: 62.5964 kg

DRUGS (2)
  1. ZYRTEC [Suspect]
     Indication: MULTIPLE ALLERGIES
     Dosage: 1 TABLET DAILY PO
     Route: 048
     Dates: start: 20080501, end: 20080606
  2. ZYRTEC [Suspect]
     Indication: URTICARIA
     Dosage: 1 TABLET DAILY PO
     Route: 048
     Dates: start: 20080501, end: 20080606

REACTIONS (4)
  - DRUG WITHDRAWAL SYNDROME [None]
  - INSOMNIA [None]
  - PRURITUS [None]
  - URTICARIA [None]
